FAERS Safety Report 8167828-6 (Version None)
Quarter: 2012Q1

REPORT INFORMATION
  Report Type: 
  Country: None (occurrence: None)
  Receive Date: 20120222
  Receipt Date: 20120208
  Transmission Date: 20120608
  Serious: Yes (Hospitalization, Other)
  Sender: FDA-Public Use
  Company Number: 1000028470

PATIENT
  Age: 49 Year
  Sex: Male

DRUGS (4)
  1. SPIRIVA (TIOTROPIUM BROMIDE) (TIOTROPIUM BROMIDE) [Concomitant]
  2. BERODUAL (FENOTEROL, IPRATROPIUM) (FENOTEROL, IPRATROPIUM) [Concomitant]
  3. ROFLUMILAST (ROFLUMILAST) (TABLETS) [Suspect]
     Indication: CHRONIC OBSTRUCTIVE PULMONARY DISEASE
     Dosage: (1 IN 1 D)
     Dates: start: 20111201, end: 20120101
  4. SEREVENT (SALMETEROL XINAFOATE) (SALMETEROL XINAFOATE) [Concomitant]

REACTIONS (1)
  - EPISTAXIS [None]
